FAERS Safety Report 22156974 (Version 1)
Quarter: 2023Q1

REPORT INFORMATION
  Report Type: Spontaneous
  Country: JP (occurrence: JP)
  Receive Date: 20230330
  Receipt Date: 20230330
  Transmission Date: 20230418
  Serious: Yes (Life-Threatening, Hospitalization, Other)
  Sender: FDA-Public Use
  Company Number: JP-PFIZER INC-PV202300057437

PATIENT
  Age: 55 Year
  Sex: Female
  Weight: 46 kg

DRUGS (8)
  1. RHEUMATREX [Suspect]
     Active Substance: METHOTREXATE SODIUM
     Indication: Rheumatoid arthritis
     Dosage: 10MG/WEEKLY(6MG(THURSDAY)+4MG(FRIDAY))
     Route: 048
     Dates: end: 2023
  2. FOLIC ACID [Concomitant]
     Active Substance: FOLIC ACID
     Dosage: UNK
  3. CELECOXIB [Concomitant]
     Active Substance: CELECOXIB
     Dosage: UNK
  4. SODIUM FERROUS CITRATE [Concomitant]
     Active Substance: SODIUM FERROUS CITRATE
     Dosage: UNK
  5. GASTER [Concomitant]
     Active Substance: FAMOTIDINE
     Dosage: UNK
  6. ELDECALCITOL [Concomitant]
     Active Substance: ELDECALCITOL
     Dosage: UNK
  7. RISEDRONATE SODIUM [Concomitant]
     Active Substance: RISEDRONATE SODIUM
     Dosage: UNK
  8. DEXAMETHASONE DIPROPIONATE [Concomitant]
     Active Substance: DEXAMETHASONE DIPROPIONATE
     Dosage: UNK

REACTIONS (9)
  - Full blood count decreased [Recovered/Resolved]
  - Stomatitis [Recovered/Resolved]
  - Febrile neutropenia [Unknown]
  - Sepsis [Unknown]
  - Agranulocytosis [Unknown]
  - Renal impairment [Unknown]
  - Myelosuppression [Unknown]
  - Oropharyngeal pain [Unknown]
  - Drug eruption [Unknown]

NARRATIVE: CASE EVENT DATE: 20221101
